FAERS Safety Report 8582067-2 (Version None)
Quarter: 2012Q3

REPORT INFORMATION
  Report Type: 
  Country: None (occurrence: None)
  Receive Date: 20120809
  Receipt Date: 20120806
  Transmission Date: 20120928
  Serious: Yes (Other)
  Sender: FDA-Public Use
  Company Number: US-PFIZER INC-2012183074

PATIENT
  Age: 62 Year
  Sex: Female

DRUGS (2)
  1. GEODON [Suspect]
     Dosage: UNK
  2. PRISTIQ [Suspect]
     Dosage: 50 MG, 2X/DAY

REACTIONS (6)
  - EMOTIONAL DISTRESS [None]
  - CHEST PAIN [None]
  - PALPITATIONS [None]
  - DYSPNOEA EXERTIONAL [None]
  - DYSPNOEA PAROXYSMAL NOCTURNAL [None]
  - OEDEMA [None]
